FAERS Safety Report 9284004 (Version 2)
Quarter: 2014Q1

REPORT INFORMATION
  Report Type: Spontaneous
  Country: US (occurrence: None)
  Receive Date: 20130503
  Receipt Date: 20140304
  Transmission Date: 20141002
  Serious: Yes (Other)
  Sender: FDA-Public Use
  Company Number: CIO13023470

PATIENT
  Age: 10 Year
  Sex: Male

DRUGS (1)
  1. PEPTO-BISMOL [Suspect]
     Indication: ABDOMINAL PAIN UPPER
     Dosage: 2 TBSP ONCE AT NIGHT,
     Route: 048
     Dates: start: 20130418, end: 20130418

REACTIONS (2)
  - Anaphylactic reaction [None]
  - Off label use [None]
